FAERS Safety Report 10698878 (Version 2)
Quarter: 2015Q1

REPORT INFORMATION
  Report Type: Report from Study
  Country: FR (occurrence: FR)
  Receive Date: 20150108
  Receipt Date: 20150214
  Transmission Date: 20150721
  Serious: Yes (Other)
  Sender: FDA-Public Use
  Company Number: FR-EMD SERONO-8004189

PATIENT
  Sex: Female

DRUGS (2)
  1. REBIF [Suspect]
     Active Substance: INTERFERON BETA-1A
     Indication: MULTIPLE SCLEROSIS
     Dates: start: 20140630, end: 201410
  2. REBIF [Suspect]
     Active Substance: INTERFERON BETA-1A
     Dates: start: 201412

REACTIONS (5)
  - Abortion spontaneous [Unknown]
  - Injection site inflammation [Unknown]
  - Injection site pain [Unknown]
  - Injection site erythema [Unknown]
  - Maternal exposure timing unspecified [Recovered/Resolved]
